FAERS Safety Report 4696286-9 (Version None)
Quarter: 2005Q2

REPORT INFORMATION
  Report Type: 
  Country: None (occurrence: None)
  Receive Date: 20050620
  Receipt Date: 20050606
  Transmission Date: 20051028
  Serious: Yes (Other)
  Sender: FDA-Public Use
  Company Number: 2005087308

PATIENT
  Age: 56 Year
  Sex: Female
  Weight: 99.3377 kg

DRUGS (5)
  1. CELEBREX [Suspect]
     Indication: RHEUMATOID ARTHRITIS
     Dosage: 200 MG (200 MG, 1 IN 1 D),
  2. PROTONIX [Concomitant]
  3. PREMARIN [Concomitant]
  4. CLOZAPINE [Concomitant]
  5. ANTIMIGRAINE PREPARATIONS            (ANTIMIGRAINE PREPARATIONS) [Concomitant]

REACTIONS (3)
  - ARTHRALGIA [None]
  - MOBILITY DECREASED [None]
  - TREATMENT NONCOMPLIANCE [None]
